FAERS Safety Report 10075042 (Version 3)
Quarter: 2019Q4

REPORT INFORMATION
  Report Type: Spontaneous
  Country: US (occurrence: US)
  Receive Date: 20140414
  Receipt Date: 20191219
  Transmission Date: 20200122
  Serious: No
  Sender: FDA-Public Use
  Company Number: US-UCBSA-117070

PATIENT
  Sex: Female

DRUGS (1)
  1. CIMZIA [Suspect]
     Active Substance: CERTOLIZUMAB PEGOL
     Indication: ENTERITIS
     Dosage: 200 MG, EV 2 WEEKS(QOW)
     Route: 058
     Dates: start: 20140207

REACTIONS (5)
  - Anger [Unknown]
  - Crying [Unknown]
  - Mood altered [Unknown]
  - Depressed mood [Unknown]
  - Agitation [Unknown]

NARRATIVE: CASE EVENT DATE: 2014
